FAERS Safety Report 23048440 (Version 2)
Quarter: 2023Q4

REPORT INFORMATION
  Report Type: Spontaneous
  Country: US (occurrence: US)
  Receive Date: 20231010
  Receipt Date: 20231013
  Transmission Date: 20240109
  Serious: No
  Sender: FDA-Public Use
  Company Number: US-BEH-2023164082

PATIENT
  Sex: Male

DRUGS (21)
  1. HIZENTRA [Suspect]
     Active Substance: HUMAN IMMUNOGLOBULIN G
     Indication: Chronic inflammatory demyelinating polyradiculoneuropathy
     Dosage: 19 GRAM, BIW
     Route: 058
  2. HIZENTRA [Suspect]
     Active Substance: HUMAN IMMUNOGLOBULIN G
     Dosage: 25 GRAM, BIW
     Route: 058
     Dates: start: 20181113
  3. TYLENOL [Concomitant]
     Active Substance: ACETAMINOPHEN
     Indication: Premedication
  4. AMITIZA [Concomitant]
     Active Substance: LUBIPROSTONE
  5. ASPIRIN [Concomitant]
     Active Substance: ASPIRIN
  6. ATORVASTATIN [Concomitant]
     Active Substance: ATORVASTATIN
  7. CLONAZEPAM [Concomitant]
     Active Substance: CLONAZEPAM
  8. CLOPIDOGREL [Concomitant]
     Active Substance: CLOPIDOGREL BISULFATE
  9. DESONIDE [Concomitant]
     Active Substance: DESONIDE
  10. DILTIAZEM [Concomitant]
     Active Substance: DILTIAZEM
  11. EMGALITY [Concomitant]
     Active Substance: GALCANEZUMAB-GNLM
  12. EPINEPHRINE [Concomitant]
     Active Substance: EPINEPHRINE
  13. FAMOTIDINE [Concomitant]
     Active Substance: FAMOTIDINE
  14. FENTANYL [Concomitant]
     Active Substance: FENTANYL
  15. GABAPENTIN [Concomitant]
     Active Substance: GABAPENTIN
  16. METFORMIN [Concomitant]
     Active Substance: METFORMIN HYDROCHLORIDE
  17. NARCAN [Concomitant]
     Active Substance: NALOXONE HYDROCHLORIDE
  18. OMEPRAZOLE [Concomitant]
     Active Substance: OMEPRAZOLE
  19. SOTALOL AF [SOTALOL] [Concomitant]
  20. SOTALOL [Concomitant]
     Active Substance: SOTALOL
  21. TRAMADOL [Concomitant]
     Active Substance: TRAMADOL\TRAMADOL HYDROCHLORIDE

REACTIONS (5)
  - Headache [Unknown]
  - No adverse event [Unknown]
  - Therapy change [Unknown]
  - Musculoskeletal stiffness [Unknown]
  - Paraesthesia [Unknown]
